FAERS Safety Report 12328900 (Version 1)
Quarter: 2016Q2

REPORT INFORMATION
  Report Type: Other
  Country: JP (occurrence: JP)
  Receive Date: 20160503
  Receipt Date: 20160503
  Transmission Date: 20160815
  Serious: Yes (Hospitalization)
  Sender: FDA-Public Use
  Company Number: JP-WARNER CHILCOTT, LLC-1051347

PATIENT
  Age: 84 Year
  Weight: 45.09 kg

DRUGS (3)
  1. MESALAZINE [Suspect]
     Active Substance: MESALAMINE
     Indication: COLITIS ULCERATIVE
     Route: 048
  2. PREDNISOLONE. [Concomitant]
     Active Substance: PREDNISOLONE
  3. AZATHIOPRINE. [Concomitant]
     Active Substance: AZATHIOPRINE

REACTIONS (7)
  - Hyponatraemia [Recovering/Resolving]
  - Pyrexia [Recovering/Resolving]
  - Rales [Recovering/Resolving]
  - Drug ineffective [Recovering/Resolving]
  - Lung infiltration [Recovering/Resolving]
  - Anaemia [Recovering/Resolving]
  - Pneumonia [Recovering/Resolving]
